FAERS Safety Report 18358497 (Version 1)
Quarter: 2020Q4

REPORT INFORMATION
  Report Type: Spontaneous
  Country: CA (occurrence: CA)
  Receive Date: 20201008
  Receipt Date: 20201008
  Transmission Date: 20210114
  Serious: Yes (Death)
  Sender: FDA-Public Use
  Company Number: CA-PFIZER INC-2020344093

PATIENT
  Age: 83 Year
  Sex: Male

DRUGS (1)
  1. LORLATINIB [Suspect]
     Active Substance: LORLATINIB
     Indication: ROS1 GENE REARRANGEMENT
     Dosage: 100 MG, 1X/DAY
     Route: 048

REACTIONS (3)
  - Death [Fatal]
  - Off label use [Unknown]
  - Product use in unapproved indication [Unknown]
